FAERS Safety Report 19061834 (Version 3)
Quarter: 2021Q2

REPORT INFORMATION
  Report Type: Report from Study
  Country: US (occurrence: US)
  Receive Date: 20210326
  Receipt Date: 20210419
  Transmission Date: 20210717
  Serious: Yes (Death, Hospitalization)
  Sender: FDA-Public Use
  Company Number: US-ROCHE-2795965

PATIENT
  Age: 60 Year
  Sex: Female
  Weight: 74.2 kg

DRUGS (14)
  1. DEXAMETHASONE. [Concomitant]
     Active Substance: DEXAMETHASONE
  2. AROMASIN [Concomitant]
     Active Substance: EXEMESTANE
     Dates: start: 201803
  3. READI?CAT [Concomitant]
     Active Substance: BARIUM SULFATE
     Route: 048
  4. ELIQUIS [Concomitant]
     Active Substance: APIXABAN
     Dates: start: 20201022
  5. OMNIPAQUE [Concomitant]
     Active Substance: IOHEXOL
  6. AVELUMAB [Suspect]
     Active Substance: AVELUMAB
     Indication: BREAST CANCER
     Dosage: MOST RECENT DOSE 10 MG/KG, ONCE IN 2 WEEKS FOR AVELUMAB
     Route: 042
     Dates: start: 20181205, end: 20201222
  7. CALCIUM VITAMIN D [Concomitant]
     Active Substance: CALCIUM\VITAMIN D
  8. AROMASIN [Concomitant]
     Active Substance: EXEMESTANE
     Dates: start: 20140917, end: 201803
  9. CAPECITABINE. [Suspect]
     Active Substance: CAPECITABINE
     Indication: BREAST CANCER
     Dosage: MOST RECENT DOSE 1500 MG, TWICE A DAY DAY1?14, EVERY 21 DAY CYCLE FOR CAPECITABINE
     Route: 048
     Dates: start: 20210211, end: 20210223
  10. PALBOCICLIB [Suspect]
     Active Substance: PALBOCICLIB
     Indication: BREAST CANCER
     Dosage: 5D ON, 2 D OFF
     Route: 048
     Dates: start: 20181205, end: 20201222
  11. FULVESTRANT. [Suspect]
     Active Substance: FULVESTRANT
     Indication: BREAST CANCER
     Route: 065
     Dates: start: 20181205, end: 20201222
  12. LORAZEPAM. [Concomitant]
     Active Substance: LORAZEPAM
  13. ZOFRAN [Concomitant]
     Active Substance: ONDANSETRON HYDROCHLORIDE
  14. URSODIOL. [Concomitant]
     Active Substance: URSODIOL
     Dates: start: 20210119

REACTIONS (7)
  - Hepatic failure [Fatal]
  - Haemolysis [Recovered/Resolved]
  - Portal hypertension [Fatal]
  - Disseminated intravascular coagulation [Fatal]
  - Disease progression [Fatal]
  - Drug ineffective [Unknown]
  - Abdominal pain [Recovered/Resolved]

NARRATIVE: CASE EVENT DATE: 20210117
